FAERS Safety Report 9586344 (Version 1)
Quarter: 2013Q4

REPORT INFORMATION
  Report Type: Report from Study
  Country: NL (occurrence: NL)
  Receive Date: 20131003
  Receipt Date: 20131003
  Transmission Date: 20140711
  Serious: Yes (Death)
  Sender: FDA-Public Use
  Company Number: PHHY2013NL109925

PATIENT
  Age: 80 Year
  Sex: Male

DRUGS (4)
  1. ZOMETA [Suspect]
     Indication: PROSTATE CANCER METASTATIC
     Dosage: 4 MG/100 ML ONCE EVERY 4 WEEKS
     Route: 041
  2. ZOMETA [Suspect]
     Dosage: 4 MG/100 ML ONCE EVERY 4 WEEKS
     Route: 041
     Dates: start: 20120725
  3. ZOMETA [Suspect]
     Dosage: 4 MG/100 ML ONCE EVERY 4 WEEKS
     Route: 041
     Dates: start: 20130827
  4. ZOMETA [Suspect]
     Dosage: 4 MG/100 ML ONCE EVERY 4 WEEKS
     Route: 041
     Dates: start: 20130919

REACTIONS (1)
  - Death [Fatal]
